FAERS Safety Report 10082906 (Version 4)
Quarter: 2015Q3

REPORT INFORMATION
  Report Type: Spontaneous
  Country: JP (occurrence: JP)
  Receive Date: 20140417
  Receipt Date: 20150707
  Transmission Date: 20151125
  Serious: Yes (Other)
  Sender: FDA-Public Use
  Company Number: JP-ROCHE-1379673

PATIENT
  Age: 75 Year
  Sex: Male
  Weight: 50 kg

DRUGS (10)
  1. NORVASC [Concomitant]
     Active Substance: AMLODIPINE BESYLATE
     Indication: HYPERTENSION
     Route: 048
     Dates: start: 20131003
  2. COVERSYL [Concomitant]
     Active Substance: PERINDOPRIL
     Indication: HYPERTENSION
     Route: 048
     Dates: start: 20121011, end: 20121101
  3. MIRCERA [Suspect]
     Active Substance: METHOXY POLYETHYLENE GLYCOL-EPOETIN BETA
     Indication: NEPHROGENIC ANAEMIA
     Route: 042
     Dates: start: 20130513, end: 20140430
  4. FESIN (JAPAN) [Concomitant]
     Active Substance: IRON SUCROSE
     Indication: NEPHROGENIC ANAEMIA
     Dosage: WHEN DIALYSIS ENDS
     Route: 042
     Dates: start: 20130408, end: 20131125
  5. CALTAN [Concomitant]
     Active Substance: CALCIUM CARBONATE
     Indication: IGA NEPHROPATHY
     Route: 048
     Dates: start: 20130906
  6. COVERSYL [Concomitant]
     Active Substance: PERINDOPRIL
     Indication: HYPERTENSION
     Route: 048
     Dates: start: 20120914, end: 20121010
  7. ROCALTROL [Concomitant]
     Active Substance: CALCITRIOL
     Indication: IGA NEPHROPATHY
     Route: 048
     Dates: start: 20130510
  8. ALOSENN [Concomitant]
     Active Substance: SENNA LEAF
     Indication: CONSTIPATION
     Route: 048
     Dates: start: 20130522, end: 20140124
  9. LASIX [Concomitant]
     Active Substance: FUROSEMIDE
     Indication: IGA NEPHROPATHY
     Route: 048
     Dates: start: 20110209
  10. COVERSYL [Concomitant]
     Active Substance: PERINDOPRIL
     Indication: HYPERTENSION
     Route: 048
     Dates: start: 20121102

REACTIONS (1)
  - Anaemia [Not Recovered/Not Resolved]

NARRATIVE: CASE EVENT DATE: 20131028
